FAERS Safety Report 10363872 (Version 2)
Quarter: 2015Q1

REPORT INFORMATION
  Report Type: Report from Study
  Country: US (occurrence: US)
  Receive Date: 20140805
  Receipt Date: 20150215
  Transmission Date: 20150720
  Serious: Yes (Death)
  Sender: FDA-Public Use
  Company Number: US-ABBVIE-14P-163-1267641-00

PATIENT
  Sex: Female
  Weight: 168.43 kg

DRUGS (1)
  1. SYNTHROID [Suspect]
     Active Substance: LEVOTHYROXINE SODIUM
     Indication: HYPOTHYROIDISM
     Route: 048
     Dates: start: 20070314, end: 20140724

REACTIONS (7)
  - Chronic obstructive pulmonary disease [Fatal]
  - Hepatic cirrhosis [Fatal]
  - Acute respiratory failure [Fatal]
  - Atrial fibrillation [Fatal]
  - Pancytopenia [Fatal]
  - Renal failure [Fatal]
  - Obesity [Fatal]
